FAERS Safety Report 7366255-9 (Version None)
Quarter: 2011Q1

REPORT INFORMATION
  Report Type: 
  Country: None (occurrence: None)
  Receive Date: 20110309
  Receipt Date: 20110222
  Transmission Date: 20110831
  Serious: No
  Sender: FDA-Public Use
  Company Number: THQ2011A00839

PATIENT
  Sex: Male

DRUGS (5)
  1. HUMALOG [Suspect]
     Indication: TYPE 2 DIABETES MELLITUS
  2. HUMALOG [Suspect]
     Indication: TYPE 2 DIABETES MELLITUS
  3. GLUCOPHAGE [Suspect]
  4. ACTOS [Suspect]
  5. LANTUS [Suspect]

REACTIONS (2)
  - DRUG INEFFECTIVE [None]
  - CARDIAC DISORDER [None]
